FAERS Safety Report 4980405-0 (Version None)
Quarter: 2006Q2

REPORT INFORMATION
  Report Type: 
  Country: None (occurrence: None)
  Receive Date: 20060424
  Receipt Date: 20060301
  Transmission Date: 20061013
  Serious: Yes (Disabling, Other)
  Sender: FDA-Public Use
  Company Number: US-GLAXOSMITHKLINE-A0595715A

PATIENT
  Age: 65 Year
  Sex: Female
  Weight: 68.2 kg

DRUGS (7)
  1. WELLBUTRIN XL [Suspect]
     Indication: DEPRESSION
     Dosage: 150MG PER DAY
     Route: 048
     Dates: start: 20060210, end: 20060219
  2. LIPITOR [Concomitant]
  3. TOPROL-XL [Concomitant]
  4. LISINOPRIL [Concomitant]
  5. LASIX [Concomitant]
  6. ATIVAN [Concomitant]
  7. LIBRIUM [Concomitant]

REACTIONS (5)
  - ERYTHEMA [None]
  - GENERALISED ERYTHEMA [None]
  - LOCAL SWELLING [None]
  - PRURITUS GENERALISED [None]
  - RASH MORBILLIFORM [None]
